FAERS Safety Report 8623236-2 (Version None)
Quarter: 2012Q3

REPORT INFORMATION
  Report Type: 
  Country: None (occurrence: None)
  Receive Date: 20120827
  Receipt Date: 20120819
  Transmission Date: 20120928
  Serious: Yes (Other)
  Sender: FDA-Public Use
  Company Number: US-US-EMD SERONO, INC.-7156243

PATIENT
  Sex: Male

DRUGS (2)
  1. TAR SHAMPOO WITH INL RINSE [Concomitant]
     Indication: SKIN DISORDER
  2. REBIF [Suspect]
     Indication: MULTIPLE SCLEROSIS
     Route: 058
     Dates: start: 20070308

REACTIONS (3)
  - INJECTION SITE PAIN [None]
  - HERNIA [None]
  - ARTHRITIS [None]
